FAERS Safety Report 5465806-9 (Version None)
Quarter: 2007Q3

REPORT INFORMATION
  Report Type: 
  Country: None (occurrence: None)
  Receive Date: 20070919
  Receipt Date: 20070919
  Transmission Date: 20080115
  Serious: Yes (Other)
  Sender: FDA-Public Use
  Company Number: None

PATIENT
  Age: 30 Year
  Sex: Female
  Weight: 52.6173 kg

DRUGS (1)
  1. VALTREX [Suspect]
     Indication: GENITAL HERPES
     Dosage: 1 GM TABLET 1X A DAY PO
     Route: 048
     Dates: start: 20070915, end: 20070916

REACTIONS (8)
  - ABASIA [None]
  - APHASIA [None]
  - ASTHENIA [None]
  - CATATONIA [None]
  - CONFUSIONAL STATE [None]
  - DYSSTASIA [None]
  - FEAR [None]
  - SIMILAR REACTION ON PREVIOUS EXPOSURE TO DRUG [None]
